FAERS Safety Report 11537600 (Version 4)
Quarter: 2016Q3

REPORT INFORMATION
  Report Type: Spontaneous
  Country: JP (occurrence: JP)
  Receive Date: 20150922
  Receipt Date: 20160826
  Transmission Date: 20161109
  Serious: Yes (Death, Other)
  Sender: FDA-Public Use
  Company Number: JP-BRISTOL-MYERS SQUIBB COMPANY-BMS-2015-062065

PATIENT
  Age: 14 Year
  Sex: Male

DRUGS (1)
  1. HYDREA [Suspect]
     Active Substance: HYDROXYUREA
     Indication: LEUKOSTASIS SYNDROME
     Route: 065

REACTIONS (2)
  - Disseminated intravascular coagulation [Fatal]
  - Tumour lysis syndrome [Fatal]
